FAERS Safety Report 16455526 (Version 1)
Quarter: 2019Q2

REPORT INFORMATION
  Report Type: Spontaneous
  Country: US (occurrence: US)
  Receive Date: 20190619
  Receipt Date: 20190619
  Transmission Date: 20190711
  Serious: No
  Sender: FDA-Public Use
  Company Number: US-ROCHE-2163883

PATIENT
  Age: 62 Year
  Sex: Female
  Weight: 88.08 kg

DRUGS (4)
  1. COUMADIN [Concomitant]
     Active Substance: WARFARIN SODIUM
     Dosage: TAKES 2.5 MG ON TUESDAY AND SATURDAY
     Route: 048
     Dates: start: 198907
  2. ACTEMRA [Suspect]
     Active Substance: TOCILIZUMAB
     Indication: RHEUMATOID ARTHRITIS
     Route: 058
     Dates: start: 20180708
  3. ACTEMRA [Suspect]
     Active Substance: TOCILIZUMAB
     Route: 058
     Dates: start: 20180722
  4. COUMADIN [Concomitant]
     Active Substance: WARFARIN SODIUM
     Dosage: TAKES 5 MG ON ^REST OF DAYS^ ;ONGOING: YES
     Route: 048
     Dates: start: 198907

REACTIONS (4)
  - Discomfort [Not Recovered/Not Resolved]
  - Pain in extremity [Not Recovered/Not Resolved]
  - Loss of personal independence in daily activities [Not Recovered/Not Resolved]
  - Grip strength decreased [Not Recovered/Not Resolved]

NARRATIVE: CASE EVENT DATE: 20180715
